FAERS Safety Report 9006381 (Version 2)
Quarter: 2013Q1

REPORT INFORMATION
  Report Type: Spontaneous
  Country: FR (occurrence: None)
  Receive Date: 20121227
  Receipt Date: 20130129
  Transmission Date: 20140127
  Serious: Yes (Death, Life-Threatening, Hospitalization)
  Sender: FDA-Public Use
  Company Number: 2012CP000160

PATIENT
  Age: 78 Year
  Sex: Female

DRUGS (31)
  1. ORNITHINE [Suspect]
  2. METRONIDAZOLE (METRONIDAZOLE) [Suspect]
     Dates: start: 20120112, end: 20120119
  3. TYGACIL [Suspect]
     Dates: start: 20120112, end: 20120119
  4. ACUPAN [Suspect]
     Indication: ANALGESIC THERAPY
     Dates: start: 20120113
  5. FRESUBIN [Suspect]
     Dates: start: 20120119, end: 20120201
  6. GENTAMICIN [Suspect]
     Dates: start: 20120115
  7. TAZOCILLINE [Suspect]
     Dates: start: 20120121, end: 20120201
  8. CANCIDAS [Suspect]
     Dates: start: 20120122, end: 20120201
  9. VANCOMYCIN [Suspect]
     Dates: start: 20120121, end: 20120124
  10. SONDALIS [Suspect]
     Dates: start: 20120125
  11. HYDROXYZINE (HYDROXYZINE) [Suspect]
  12. CORDARONE [Suspect]
     Dates: start: 20120116, end: 20120117
  13. ESOMEPRAZOLE [Suspect]
     Dates: start: 20120112
  14. NOREPINEPHRINE [Concomitant]
  15. INSULIN [Concomitant]
  16. FUROSEMIDE [Suspect]
  17. CALCIPARINE [Concomitant]
  18. VOGALENE [Concomitant]
  19. COAPROVEL [Concomitant]
  20. DIFFU-K [Concomitant]
  21. EZETROL [Concomitant]
  22. PROPRANOLOL [Concomitant]
  23. ALLOPURINOL [Concomitant]
  24. MIANSERIN [Concomitant]
  25. ALPRAZOLAM [Concomitant]
  26. HEXAQUINE [Concomitant]
  27. DICLOFENAC [Concomitant]
  28. PREDNISONE [Concomitant]
  29. PERFALGAN [Suspect]
     Indication: ANALGESIC THERAPY
     Route: 042
     Dates: start: 20120113, end: 20120130
  30. AMIKACIN SULFATE [Suspect]
     Dates: start: 20120121, end: 20120122
  31. MORPHINE SULFATE [Suspect]
     Dates: start: 20120114

REACTIONS (19)
  - Septic shock [None]
  - Cholestasis [None]
  - Thrombocytopenia [None]
  - Leukopenia [None]
  - Large intestine perforation [None]
  - Haemodynamic instability [None]
  - Peritonitis [None]
  - Anastomotic leak [None]
  - Intestinal infarction [None]
  - Multi-organ failure [None]
  - Post procedural complication [None]
  - Leukocytosis [None]
  - Renal impairment [None]
  - Cardiovascular insufficiency [None]
  - Haemodialysis [None]
  - Blood alkaline phosphatase increased [None]
  - Alanine aminotransferase increased [None]
  - Aspartate aminotransferase increased [None]
  - Intestinal ischaemia [None]
